FAERS Safety Report 5634618-5 (Version None)
Quarter: 2008Q1

REPORT INFORMATION
  Report Type: 
  Country: None (occurrence: None)
  Receive Date: 20080131
  Receipt Date: 20071219
  Transmission Date: 20080703
  Serious: No
  Sender: FDA-Public Use
  Company Number: PHEH2007US16002

PATIENT
  Age: 87 Year
  Sex: Female

DRUGS (1)
  1. TEKTURNA [Suspect]
     Dates: start: 20071116, end: 20071126

REACTIONS (1)
  - BLOOD PRESSURE INCREASED [None]
